FAERS Safety Report 4737408-0 (Version None)
Quarter: 2005Q3

REPORT INFORMATION
  Report Type: 
  Country: None (occurrence: None)
  Receive Date: 20050805
  Receipt Date: 20050722
  Transmission Date: 20060218
  Serious: Yes (Hospitalization)
  Sender: FDA-Public Use
  Company Number: VIS10203.2005

PATIENT
  Age: 76 Year
  Sex: Female

DRUGS (7)
  1. VISICOL [Suspect]
     Indication: COLONOSCOPY
     Dosage: 28 G ONCE PO
     Route: 048
     Dates: start: 20050601, end: 20050601
  2. DULCOLAX [Concomitant]
  3. GLUCOPHAGE [Concomitant]
  4. GLUCOTROL [Concomitant]
  5. LOPRESSOR [Concomitant]
  6. DIOVAN [Concomitant]
  7. CALAN [Concomitant]

REACTIONS (1)
  - RENAL FAILURE [None]
